FAERS Safety Report 16372809 (Version 3)
Quarter: 2019Q3

REPORT INFORMATION
  Report Type: Spontaneous
  Country: IT (occurrence: IT)
  Receive Date: 20190530
  Receipt Date: 20190722
  Transmission Date: 20191004
  Serious: Yes (Hospitalization, Other)
  Sender: FDA-Public Use
  Company Number: IT-MYLANLABS-2019M1049446

PATIENT
  Age: 67 Year
  Sex: Female

DRUGS (9)
  1. PREDNISONE. [Suspect]
     Active Substance: PREDNISONE
     Indication: GRANULOMATOSIS WITH POLYANGIITIS
     Dosage: 25 MG, ONCE DAILY
     Route: 042
  2. VITAMIN B12 [Concomitant]
     Active Substance: CYANOCOBALAMIN
     Dosage: UNK,SUPPLEMENTATION THERAPY
     Route: 065
  3. PREDNISONE. [Suspect]
     Active Substance: PREDNISONE
     Dosage: 25 MG, ONCE DAILYTAPERING OFF REGIMEN
     Route: 065
  4. CYCLOPHOSPHAMIDE. [Suspect]
     Active Substance: CYCLOPHOSPHAMIDE
     Indication: VASCULITIS
     Dosage: UNK
  5. INSULIN [Concomitant]
     Active Substance: INSULIN NOS
     Indication: DIABETES MELLITUS
     Dosage: UNK
     Route: 065
  6. CYCLOPHOSPHAMIDE. [Suspect]
     Active Substance: CYCLOPHOSPHAMIDE
     Indication: GRANULOMATOSIS WITH POLYANGIITIS
     Dosage: 100 MG, ONCE DAILY
     Route: 042
  7. PREDNISONE. [Suspect]
     Active Substance: PREDNISONE
     Indication: VASCULITIS
     Dosage: UNK
  8. CYCLOPHOSPHAMIDE. [Suspect]
     Active Substance: CYCLOPHOSPHAMIDE
     Dosage: 100 MG, ONCE DAILY
     Route: 065
  9. FOLATE [Concomitant]
     Active Substance: FOLATE SODIUM
     Dosage: UNK,SUPPLEMENTATION THERAPY
     Route: 065

REACTIONS (7)
  - Respiratory failure [Recovered/Resolved]
  - Diabetes mellitus [Recovering/Resolving]
  - Steroid diabetes [Unknown]
  - Dysphoria [Unknown]
  - Pneumonia viral [Recovered/Resolved]
  - Herpes virus infection [Unknown]
  - Epstein-Barr virus infection [Recovered/Resolved]
